FAERS Safety Report 5703147-2 (Version None)
Quarter: 2008Q2

REPORT INFORMATION
  Report Type: 
  Country: None (occurrence: None)
  Receive Date: 20080411
  Receipt Date: 20080128
  Transmission Date: 20081010
  Serious: Yes (Disabling, Other)
  Sender: FDA-Public Use
  Company Number: US-PFIZER INC-2007107277

PATIENT
  Sex: Female
  Weight: 70.3 kg

DRUGS (9)
  1. CHANTIX [Suspect]
     Indication: CHRONIC OBSTRUCTIVE PULMONARY DISEASE
     Route: 048
  2. CHANTIX [Suspect]
     Indication: SMOKER
  3. TOPAMAX [Suspect]
     Indication: WEIGHT DECREASED
  4. TOPAMAX [Suspect]
     Indication: OBESITY
  5. VYTORIN [Concomitant]
  6. PROVERA [Concomitant]
  7. ALLEGRA [Concomitant]
  8. OMEPRAZOLE [Concomitant]
  9. ALLEGRA D 24 HOUR [Concomitant]

REACTIONS (4)
  - DENTAL TREATMENT [None]
  - GINGIVAL OPERATION [None]
  - GINGIVITIS [None]
  - STOMATITIS [None]
